FAERS Safety Report 4879668-1 (Version None)
Quarter: 2006Q1

REPORT INFORMATION
  Report Type: 
  Country: None (occurrence: None)
  Receive Date: 20060111
  Receipt Date: 20051230
  Transmission Date: 20060701
  Serious: Yes (Hospitalization)
  Sender: FDA-Public Use
  Company Number: US-2005-028192

PATIENT
  Age: 47 Year
  Sex: Female

DRUGS (6)
  1. BETASERON [Suspect]
     Indication: MULTIPLE SCLEROSIS
     Dosage: 8 MIU, EVERY 2D, SUBCUTANEOUS
     Route: 058
     Dates: start: 20050923
  2. MACRODANTN (NITROFURANTOIN) [Concomitant]
  3. ZOCOR [Concomitant]
  4. PERCOCET [Concomitant]
  5. RESTORIL [Concomitant]
  6. PHENERGAN   AVENTIS PHARMA  (PROMETHAZINE HYDROCHLORIDE) [Concomitant]

REACTIONS (3)
  - ABDOMINAL PAIN [None]
  - BACK PAIN [None]
  - GASTROINTESTINAL STOMA COMPLICATION [None]
